FAERS Safety Report 8050743-6 (Version None)
Quarter: 2012Q1

REPORT INFORMATION
  Report Type: 
  Country: None (occurrence: None)
  Receive Date: 20120117
  Receipt Date: 20120117
  Transmission Date: 20120608
  Serious: Yes (Hospitalization)
  Sender: FDA-Public Use
  Company Number: None

PATIENT
  Age: 66 Year
  Sex: Male

DRUGS (9)
  1. ACTOS [Concomitant]
  2. AMOXICILLIN [Suspect]
     Indication: DENTAL CARE
     Dosage: 500 MG
     Route: 048
  3. TIMOLOL MALEATE [Concomitant]
     Route: 047
  4. METFORMIN HCL [Concomitant]
  5. LISINOPRIL [Concomitant]
  6. PROVIGIL [Concomitant]
  7. ALPHAGAN P [Concomitant]
     Route: 047
  8. XALATAN [Concomitant]
  9. SIMVASTATIN [Concomitant]

REACTIONS (6)
  - ERYTHEMA [None]
  - NAUSEA [None]
  - SWELLING [None]
  - VOMITING [None]
  - PRURITUS [None]
  - DRUG ERUPTION [None]
